FAERS Safety Report 8859520 (Version 1)
Quarter: 2012Q4

REPORT INFORMATION
  Report Type: 
  Country: US (occurrence: US)
  Receive Date: 20121024
  Receipt Date: 20121024
  Transmission Date: 20130627
  Serious: No
  Sender: FDA-Public Use
  Company Number: US-ROCHE-GNE248461

PATIENT
  Sex: Female

DRUGS (6)
  1. RAPTIVA [Suspect]
     Indication: PSORIASIS
     Dosage: 80 mg, 1/Week
     Route: 058
     Dates: start: 200505
  2. RAPTIVA [Suspect]
     Indication: PUSTULAR PSORIASIS
  3. XANAX [Concomitant]
     Indication: ANXIETY
     Dosage: 0.5 mg, prn
     Route: 065
  4. VANOS [Concomitant]
     Indication: PRODUCT USED FOR UNKNOWN INDICATION
     Dosage: UNK, bid
     Route: 065
     Dates: start: 20060427
  5. FLUOCINOLONE SOLUTION [Concomitant]
     Indication: PRODUCT USED FOR UNKNOWN INDICATION
     Dosage: 5 gtt, bid
     Route: 047
     Dates: start: 20060427
  6. TACLONEX OINTMENT [Concomitant]
     Indication: PRODUCT USED FOR UNKNOWN INDICATION
     Dosage: UNK, QHS
     Route: 065
     Dates: start: 20070330

REACTIONS (5)
  - Hypoaesthesia [Not Recovered/Not Resolved]
  - Dizziness [Unknown]
  - Skin plaque [Unknown]
  - Pruritus [Unknown]
  - Pain [Unknown]
